FAERS Safety Report 17183080 (Version 3)
Quarter: 2020Q1

REPORT INFORMATION
  Report Type: Spontaneous
  Country: JP (occurrence: JP)
  Receive Date: 20191220
  Receipt Date: 20200211
  Transmission Date: 20200409
  Serious: Yes (Hospitalization, Disabling)
  Sender: FDA-Public Use
  Company Number: JP-ROCHE-2503552

PATIENT
  Age: 72 Year
  Sex: Male

DRUGS (3)
  1. LUCENTIS [Suspect]
     Active Substance: RANIBIZUMAB
     Indication: AGE-RELATED MACULAR DEGENERATION
     Dosage: 0.05 ML,UNKNOWN
     Route: 031
     Dates: start: 20191126, end: 20191126
  2. LEVOFLOXACIN. [Concomitant]
     Active Substance: LEVOFLOXACIN
     Indication: INFECTION PROPHYLAXIS
     Dosage: 0.1 ML, QID
     Route: 047
     Dates: start: 20191124, end: 20191130
  3. CRAVIT [Suspect]
     Active Substance: LEVOFLOXACIN
     Indication: INFECTION PROPHYLAXIS
     Dosage: 250 MG
     Route: 048
     Dates: start: 20191127, end: 20191128

REACTIONS (8)
  - Gait disturbance [Unknown]
  - Dizziness [Recovering/Resolving]
  - Hemianopia homonymous [Unknown]
  - Balance disorder [Recovering/Resolving]
  - Embolic stroke [Recovered/Resolved with Sequelae]
  - Hypertension [Unknown]
  - Cerebellar ataxia [Recovering/Resolving]
  - Haemorrhagic cerebral infarction [Not Recovered/Not Resolved]

NARRATIVE: CASE EVENT DATE: 20191127
